FAERS Safety Report 9126075 (Version 5)
Quarter: 2013Q2

REPORT INFORMATION
  Report Type: Spontaneous
  Country: US (occurrence: US)
  Receive Date: 20130228
  Receipt Date: 20130520
  Transmission Date: 20140414
  Serious: Yes (Hospitalization)
  Sender: FDA-Public Use
  Company Number: US-BIOGENIDEC-2013BI018528

PATIENT
  Age: 71 Year
  Sex: Female

DRUGS (1)
  1. AVONEX [Suspect]
     Indication: MULTIPLE SCLEROSIS
     Route: 030

REACTIONS (6)
  - Hip fracture [Not Recovered/Not Resolved]
  - Neoplasm malignant [Recovered/Resolved]
  - Upper limb fracture [Recovered/Resolved]
  - Facial bones fracture [Recovered/Resolved]
  - Rib fracture [Recovered/Resolved]
  - Trigeminal neuralgia [Not Recovered/Not Resolved]
